FAERS Safety Report 9931215 (Version 3)
Quarter: 2014Q1

REPORT INFORMATION
  Report Type: Report from Study
  Country: CN (occurrence: CN)
  Receive Date: 20140228
  Receipt Date: 20140320
  Transmission Date: 20141002
  Serious: Yes (Hospitalization)
  Sender: FDA-Public Use
  Company Number: CN-AMGEN-CHNCT2014014279

PATIENT
  Age: 67 Year
  Sex: Male

DRUGS (5)
  1. DARBEPOETIN ALFA [Suspect]
     Indication: NEPHROGENIC ANAEMIA
     Dosage: 40 MCG, QWK
     Route: 042
     Dates: start: 20131210, end: 20140217
  2. EPOETIN ALFA [Concomitant]
     Indication: NEPHROGENIC ANAEMIA
     Dosage: 6000 IU, QWK
     Route: 042
     Dates: start: 20131015, end: 20131209
  3. ROCALTROL [Concomitant]
     Dosage: 0.25 MUG, BID
     Route: 065
     Dates: start: 20120708
  4. CALCIUM ACETATE [Concomitant]
     Dosage: 667 MG, TID
     Route: 065
     Dates: start: 20130908
  5. LIPITOR [Concomitant]
     Dosage: 10 MG, QD
     Route: 065
     Dates: start: 20130908

REACTIONS (3)
  - Syncope [Recovering/Resolving]
  - Pulmonary mass [Not Recovered/Not Resolved]
  - Neoplasm [Recovered/Resolved]
